FAERS Safety Report 15625182 (Version 1)
Quarter: 2018Q4

REPORT INFORMATION
  Report Type: Spontaneous
  Country: US (occurrence: US)
  Receive Date: 20181116
  Receipt Date: 20181116
  Transmission Date: 20190205
  Serious: No
  Sender: FDA-Public Use
  Company Number: PHEH2018US047580

PATIENT
  Sex: Male

DRUGS (1)
  1. METHYLPREDNISOLONE. [Suspect]
     Active Substance: METHYLPREDNISOLONE
     Indication: PRODUCT USED FOR UNKNOWN INDICATION
     Dosage: 4 MG, UNK
     Route: 065

REACTIONS (7)
  - Feeling abnormal [Unknown]
  - Ear infection [Unknown]
  - Speech disorder [Unknown]
  - Hyperacusis [Unknown]
  - Malaise [Unknown]
  - Insomnia [Unknown]
  - Fear [Unknown]
